FAERS Safety Report 20329487 (Version 1)
Quarter: 2022Q1

REPORT INFORMATION
  Report Type: Spontaneous
  Country: CA (occurrence: CA)
  Receive Date: 20220112
  Receipt Date: 20220112
  Transmission Date: 20220423
  Serious: Yes (Other)
  Sender: FDA-Public Use
  Company Number: CA-CELGENE-CAN-20220101581

PATIENT
  Sex: Female
  Weight: 54.6 kg

DRUGS (1)
  1. REBLOZYL [Suspect]
     Active Substance: LUSPATERCEPT-AAMT
     Indication: Myelodysplastic syndrome
     Dosage: 3.4333 MILLIGRAM
     Route: 041
     Dates: start: 20211013

REACTIONS (1)
  - Diverticulitis [Recovering/Resolving]
